FAERS Safety Report 10037758 (Version 1)
Quarter: 2014Q1

REPORT INFORMATION
  Report Type: Spontaneous
  Country: US (occurrence: US)
  Receive Date: 20140326
  Receipt Date: 20140326
  Transmission Date: 20141002
  Serious: No
  Sender: FDA-Public Use
  Company Number: US-PFIZER INC-2014082739

PATIENT
  Age: 64 Year
  Sex: Female
  Weight: 97.05 kg

DRUGS (5)
  1. LYRICA [Suspect]
     Indication: PAIN IN EXTREMITY
     Dosage: 75 MG, 3X/DAY
     Dates: start: 2013
  2. LYRICA [Interacting]
     Indication: RESTLESS LEGS SYNDROME
  3. LYRICA [Interacting]
     Indication: DIABETIC NEUROPATHY
  4. INSULIN [Interacting]
     Indication: DIABETES MELLITUS
     Dosage: UNK, 2X/DAY
  5. COUMADIN [Interacting]
     Indication: COAGULOPATHY
     Dosage: 5 MG, 1X/DAY

REACTIONS (2)
  - Drug interaction [Unknown]
  - Somnolence [Unknown]
